FAERS Safety Report 24893496 (Version 4)
Quarter: 2025Q1

REPORT INFORMATION
  Report Type: Report from Study
  Country: IL (occurrence: IL)
  Receive Date: 20250128
  Receipt Date: 20250207
  Transmission Date: 20250409
  Serious: Yes (Hospitalization, Other)
  Sender: ABBVIE
  Company Number: IL-ABBVIE-6105231

PATIENT
  Age: 84 Year
  Sex: Female

DRUGS (2)
  1. CARBIDOPA\LEVODOPA [Suspect]
     Active Substance: CARBIDOPA\LEVODOPA
     Indication: Parkinson^s disease
     Route: 050
     Dates: start: 20211205
  2. CARBIDOPA\LEVODOPA [Suspect]
     Active Substance: CARBIDOPA\LEVODOPA
     Route: 050

REACTIONS (11)
  - Urosepsis [Unknown]
  - Hyperhidrosis [Unknown]
  - Arrhythmia [Unknown]
  - Urinary tract infection [Not Recovered/Not Resolved]
  - Chest X-ray abnormal [Unknown]
  - Stoma site discharge [Unknown]
  - Malaise [Unknown]
  - Device leakage [Unknown]
  - Hydronephrosis [Unknown]
  - Product odour abnormal [Unknown]
  - Stoma site haemorrhage [Unknown]

NARRATIVE: CASE EVENT DATE: 20250101
